FAERS Safety Report 6870571-4 (Version None)
Quarter: 2010Q3

REPORT INFORMATION
  Report Type: 
  Country: None (occurrence: None)
  Receive Date: 20100723
  Receipt Date: 20100713
  Transmission Date: 20110219
  Serious: No
  Sender: FDA-Public Use
  Company Number: US-ASTRAZENECA-2010SE33881

PATIENT
  Age: 540 Month
  Sex: Male
  Weight: 116.6 kg

DRUGS (8)
  1. SEROQUEL [Suspect]
     Route: 048
     Dates: start: 20060309
  2. VALIUM [Concomitant]
     Route: 048
     Dates: start: 20060504
  3. LISINOPRIL [Concomitant]
     Indication: BLOOD PRESSURE
     Dates: start: 20060427
  4. SINGULAIR [Concomitant]
     Dates: start: 20060406
  5. FLEXERIL [Concomitant]
     Indication: MUSCLE SPASMS
     Dosage: THREE TIMES A DAY AS NEEDED
     Dates: start: 20060406
  6. RESTORIL [Concomitant]
     Dates: start: 20060309
  7. PHENERGAN [Concomitant]
     Indication: NAUSEA
     Dosage: ONE TABLET Q 8 HOURS AS NEEDED
     Dates: start: 20060309
  8. ZOCOR [Concomitant]
     Route: 048
     Dates: start: 20051207

REACTIONS (9)
  - ASTHMA [None]
  - BACK DISORDER [None]
  - DIABETES MELLITUS INADEQUATE CONTROL [None]
  - HYPERCOAGULATION [None]
  - HYPERTRIGLYCERIDAEMIA [None]
  - HYPOGONADISM [None]
  - OBESITY [None]
  - PHLEBITIS DEEP [None]
  - RHINITIS ALLERGIC [None]
